FAERS Safety Report 7472807-8 (Version None)
Quarter: 2011Q2

REPORT INFORMATION
  Report Type: 
  Country: None (occurrence: None)
  Receive Date: 20110511
  Receipt Date: 20110509
  Transmission Date: 20111010
  Serious: Yes (Other)
  Sender: FDA-Public Use
  Company Number: US-PFIZER INC-2011098050

PATIENT
  Sex: Female

DRUGS (4)
  1. NELFINAVIR MESYLATE [Suspect]
     Dosage: 1250 MG X2 /DAY
  2. SULFAMETHOXAZOLE AND TRIMETHOPRIM [Suspect]
     Indication: OPPORTUNISTIC INFECTION PROPHYLAXIS
  3. LAMIVUDINE + ZIDOVUDINE [Suspect]
     Indication: HIV INFECTION
     Dosage: 450 MG 2X/DAY
  4. VIRAMUNE [Suspect]
     Indication: HIV INFECTION
     Dosage: 200 MG

REACTIONS (1)
  - STILLBIRTH [None]
